FAERS Safety Report 6705302-1 (Version None)
Quarter: 2010Q2

REPORT INFORMATION
  Report Type: 
  Country: None (occurrence: None)
  Receive Date: 20100430
  Receipt Date: 20100415
  Transmission Date: 20101027
  Serious: Yes (Other)
  Sender: FDA-Public Use
  Company Number: CA-GENENTECH-300787

PATIENT
  Sex: Female

DRUGS (9)
  1. RITUXIMAB [Suspect]
     Indication: B-CELL LYMPHOMA
     Dosage: 608 MG, Q21D
     Route: 042
     Dates: start: 20100218
  2. FLUDARABINE [Suspect]
     Indication: DRUG USE FOR UNKNOWN INDICATION
     Dosage: UNK
     Route: 065
     Dates: start: 20100101
  3. BENADRYL [Suspect]
     Indication: PREMEDICATION
     Dosage: 50 MG, UNK
     Route: 065
     Dates: start: 20100218
  4. VALACYCLOVIR [Concomitant]
     Indication: DRUG USE FOR UNKNOWN INDICATION
     Dosage: UNK
  5. SULFAMETHOXAZOLE [Concomitant]
     Indication: DRUG USE FOR UNKNOWN INDICATION
     Dosage: UNK
  6. DOLASETRON MESYLATE [Concomitant]
     Indication: DRUG USE FOR UNKNOWN INDICATION
     Dosage: UNK
  7. PROCHLORPERAZINE [Concomitant]
     Indication: DRUG USE FOR UNKNOWN INDICATION
     Dosage: UNK
  8. DEXAMETHASONE [Concomitant]
     Indication: PREMEDICATION
     Dosage: UNK
     Dates: start: 20100317, end: 20100317
  9. TYLENOL W/ CODEINE NO. 3 [Concomitant]
     Indication: PREMEDICATION
     Dosage: UNK
     Dates: start: 20100317, end: 20100317

REACTIONS (12)
  - BLOOD PRESSURE DECREASED [None]
  - CHEST PAIN [None]
  - CHILLS [None]
  - HEART RATE IRREGULAR [None]
  - INFUSION RELATED REACTION [None]
  - MUSCLE TWITCHING [None]
  - NEUROPATHY PERIPHERAL [None]
  - OXYGEN SATURATION DECREASED [None]
  - SYNCOPE [None]
  - TINNITUS [None]
  - TREMOR [None]
  - VOMITING [None]
